FAERS Safety Report 7496122-1 (Version None)
Quarter: 2011Q2

REPORT INFORMATION
  Report Type: 
  Country: None (occurrence: None)
  Receive Date: 20110523
  Receipt Date: 20110510
  Transmission Date: 20111010
  Serious: Yes (Hospitalization)
  Sender: FDA-Public Use
  Company Number: PHHY2011TW39365

PATIENT
  Age: 95 Year
  Sex: Male

DRUGS (1)
  1. ACLASTA [Suspect]
     Indication: OSTEOPOROSIS
     Dosage: 5 MG/ 100 C.C, YEARLY
     Route: 042
     Dates: start: 20110503

REACTIONS (2)
  - PLEURAL EFFUSION [None]
  - DISCOMFORT [None]
